FAERS Safety Report 4702066-8 (Version None)
Quarter: 2005Q2

REPORT INFORMATION
  Report Type: 
  Country: None (occurrence: None)
  Receive Date: 20050628
  Receipt Date: 20050623
  Transmission Date: 20051028
  Serious: Yes (Hospitalization)
  Sender: FDA-Public Use
  Company Number: DE-MERCK-0506DEU00196

PATIENT
  Age: 67 Year
  Sex: Female

DRUGS (3)
  1. VYTORIN [Suspect]
     Indication: HYPERCHOLESTEROLAEMIA
     Route: 048
     Dates: start: 20050605, end: 20050601
  2. ASPIRIN [Concomitant]
     Route: 065
  3. DYDROGESTERONE AND ESTRADIOL [Concomitant]
     Route: 065

REACTIONS (1)
  - SMALL INTESTINE GANGRENE [None]
